FAERS Safety Report 11914421 (Version 2)
Quarter: 2016Q2

REPORT INFORMATION
  Report Type: Spontaneous
  Country: US (occurrence: US)
  Receive Date: 20160113
  Receipt Date: 20160413
  Transmission Date: 20160815
  Serious: No
  Sender: FDA-Public Use
  Company Number: US-RETROPHIN, INC.-2015RTN00006

PATIENT
  Age: 70 Year
  Sex: Female
  Weight: 45.35 kg

DRUGS (4)
  1. CHOLBAM [Suspect]
     Active Substance: CHOLIC ACID
     Indication: MALABSORPTION
     Dosage: 250 MG, 3X/DAY
     Route: 048
     Dates: start: 20150902, end: 20151030
  2. DELZICOLE [Concomitant]
     Indication: CROHN^S DISEASE
     Dosage: 400 UNK, UNK
  3. OMEPRAZOLE. [Concomitant]
     Active Substance: OMEPRAZOLE
     Indication: GASTROOESOPHAGEAL REFLUX DISEASE
     Dosage: 40 UNK, UNK
  4. FUROSEMIDE. [Concomitant]
     Active Substance: FUROSEMIDE
     Indication: OEDEMA
     Dosage: 40 UNK, UNK
     Dates: start: 201506

REACTIONS (6)
  - Gamma-glutamyltransferase increased [Recovering/Resolving]
  - Blood lactate dehydrogenase increased [Not Recovered/Not Resolved]
  - Alanine aminotransferase increased [Recovering/Resolving]
  - Aspartate aminotransferase increased [Recovering/Resolving]
  - Drug ineffective for unapproved indication [Unknown]
  - Blood alkaline phosphatase increased [Recovered/Resolved]

NARRATIVE: CASE EVENT DATE: 20151023
